FAERS Safety Report 24266541 (Version 1)
Quarter: 2024Q3

REPORT INFORMATION
  Report Type: Spontaneous
  Country: CA (occurrence: CA)
  Receive Date: 20240830
  Receipt Date: 20240830
  Transmission Date: 20241016
  Serious: Yes (Death, Hospitalization, Other)
  Sender: CELLTRION
  Company Number: CA-CELLTRION INC.-2021CA019679

PATIENT

DRUGS (4)
  1. TRUXIMA [Suspect]
     Active Substance: RITUXIMAB-ABBS
     Indication: Rheumatoid arthritis
     Dosage: 1000 MG, DAY1/DAY 5
     Route: 042
     Dates: start: 20210728
  2. TRUXIMA [Suspect]
     Active Substance: RITUXIMAB-ABBS
     Dosage: 1000 MG
     Route: 042
     Dates: start: 20210728
  3. TRUXIMA [Suspect]
     Active Substance: RITUXIMAB-ABBS
     Dosage: WAIT FOURTEEN DAYS TO RECEIVE A SECOND INFUSION. REPEAT IN SIX MONTHS
     Dates: start: 20220407
  4. TRUXIMA [Suspect]
     Active Substance: RITUXIMAB-ABBS
     Dosage: WAIT FOURTEEN DAYS TO RECEIVE A SECOND INFUSION. REPEAT IN SIX MONTHS
     Dates: start: 20220421

REACTIONS (4)
  - COVID-19 [Fatal]
  - Rheumatoid arthritis [Unknown]
  - Cryoglobulinaemia [Unknown]
  - Off label use [Unknown]

NARRATIVE: CASE EVENT DATE: 20220409
